FAERS Safety Report 23342188 (Version 1)
Quarter: 2023Q4

REPORT INFORMATION
  Report Type: Spontaneous
  Country: None (occurrence: US)
  Receive Date: 20231227
  Receipt Date: 20231227
  Transmission Date: 20240110
  Serious: No
  Sender: FDA-Public Use
  Company Number: US-STI Pharma LLC-2149782

PATIENT
  Age: 63 Year
  Sex: Female

DRUGS (3)
  1. ETHAMBUTOL HYDROCHLORIDE [Suspect]
     Active Substance: ETHAMBUTOL HYDROCHLORIDE
  2. AZITHROMYCIN [Concomitant]
     Active Substance: AZITHROMYCIN
  3. RIFABUTIN [Concomitant]
     Active Substance: RIFABUTIN

REACTIONS (3)
  - Mycobacterium test positive [Unknown]
  - Lung abscess [Unknown]
  - Bacterial test positive [Unknown]
